FAERS Safety Report 7301592-5 (Version None)
Quarter: 2011Q1

REPORT INFORMATION
  Report Type: 
  Country: None (occurrence: None)
  Receive Date: 20110218
  Receipt Date: 20110215
  Transmission Date: 20110831
  Serious: Yes (Hospitalization)
  Sender: FDA-Public Use
  Company Number: JP-SANOFI-AVENTIS-2010SA064344

PATIENT
  Age: 78 Year
  Sex: Male
  Weight: 62 kg

DRUGS (13)
  1. JUVELA [Concomitant]
     Route: 048
  2. TAXOTERE [Suspect]
     Route: 041
     Dates: start: 20100921
  3. ANPLAG [Concomitant]
     Route: 048
  4. ALOSENN [Concomitant]
     Route: 048
  5. TAXOTERE [Suspect]
     Indication: PROSTATE CANCER
     Route: 041
     Dates: start: 20100825
  6. TANATRIL ^TANABE^ [Concomitant]
     Route: 048
  7. DECADRON [Suspect]
     Indication: PROSTATE CANCER
     Route: 048
     Dates: start: 20100824
  8. FLUTAMIDE [Concomitant]
     Indication: PROSTATE CANCER
     Route: 048
     Dates: start: 20100801
  9. LEUPLIN [Concomitant]
     Route: 042
     Dates: start: 20090101
  10. ALLOZYM [Concomitant]
     Route: 048
  11. HUMULIN 70/30 [Concomitant]
     Dosage: 12 U IN THE MORNING; 10 U IN THE EVENING
  12. TAXOTERE [Suspect]
     Route: 041
     Dates: start: 20101021
  13. CALCIUM POLYSTYRENE SULFONATE [Concomitant]
     Route: 048

REACTIONS (2)
  - HYPERTENSIVE EMERGENCY [None]
  - HYPERGLYCAEMIA [None]
